FAERS Safety Report 12474194 (Version 1)
Quarter: 2016Q2

REPORT INFORMATION
  Report Type: Spontaneous
  Country: US (occurrence: US)
  Receive Date: 20160616
  Receipt Date: 20160616
  Transmission Date: 20160815
  Serious: Yes (Hospitalization, Other)
  Sender: FDA-Public Use
  Company Number: US-CITRON PHARMA LLC-B16-0068-AE

PATIENT
  Age: 7 Day
  Sex: Female
  Weight: 2 kg

DRUGS (5)
  1. SEVOFLURANE. [Suspect]
     Active Substance: SEVOFLURANE
     Indication: ANAESTHESIA
     Dosage: UNK
     Route: 065
  2. ROBINUL FORTE [Suspect]
     Active Substance: GLYCOPYRROLATE
  3. ROBINUL [Suspect]
     Active Substance: GLYCOPYRROLATE
     Indication: ANAESTHESIA
     Dosage: 0.1 MG, UNK
     Route: 065
  4. ROCURONIUM [Suspect]
     Active Substance: ROCURONIUM BROMIDE
     Indication: ANAESTHESIA
     Dosage: 20 MG, QID
     Route: 065
  5. FENTANYL. [Suspect]
     Active Substance: FENTANYL
     Indication: ANAESTHESIA
     Dosage: 55 ?G, UNK, (27.5 ?G/KG)
     Route: 065

REACTIONS (6)
  - Mydriasis [Recovered/Resolved]
  - Neuromuscular blockade [Unknown]
  - Acidosis hyperchloraemic [Unknown]
  - Hypotonia [Unknown]
  - Off label use [None]
  - Haemorrhage [Unknown]
